FAERS Safety Report 5477529-0 (Version None)
Quarter: 2007Q4

REPORT INFORMATION
  Report Type: 
  Country: None (occurrence: None)
  Receive Date: 20071001
  Receipt Date: 20070918
  Transmission Date: 20080405
  Serious: Yes (Death, Other)
  Sender: FDA-Public Use
  Company Number: GXKR2007GB07202

PATIENT
  Age: 26 Year
  Sex: Female
  Weight: 75.4 kg

DRUGS (8)
  1. FLUOXETINE HCL [Suspect]
  2. ZYPREXA [Suspect]
     Dosage: 5 MG TID
     Dates: start: 20051220
  3. TRIMEPRAZINE TAB [Suspect]
  4. DIAZEPAM [Concomitant]
  5. NITRAZEPAM [Concomitant]
  6. ACETAMINOPHEN [Concomitant]
  7. RISPERIDONE [Concomitant]
  8. MICROGYNON (ETHINYLESTRADIOL, LEVONORGESTREL) [Concomitant]

REACTIONS (18)
  - ABNORMAL BEHAVIOUR [None]
  - ACUTE RESPIRATORY DISTRESS SYNDROME [None]
  - COLD SWEAT [None]
  - COUGH [None]
  - DEPRESSED LEVEL OF CONSCIOUSNESS [None]
  - DIFFUSE ALVEOLAR DAMAGE [None]
  - EMOTIONAL DISTRESS [None]
  - FEELING HOT [None]
  - HEADACHE [None]
  - HYPERHIDROSIS [None]
  - LOWER RESPIRATORY TRACT INFECTION [None]
  - MULTIPLE DRUG OVERDOSE [None]
  - PALLOR [None]
  - PNEUMONIA ASPIRATION [None]
  - PULMONARY CONGESTION [None]
  - PULMONARY OEDEMA [None]
  - SUDDEN DEATH [None]
  - SYNCOPE [None]
